FAERS Safety Report 20679218 (Version 1)
Quarter: 2022Q2

REPORT INFORMATION
  Report Type: Spontaneous
  Country: IN (occurrence: None)
  Receive Date: 20220405
  Receipt Date: 20220405
  Transmission Date: 20220720
  Serious: Yes (Other)
  Sender: FDA-Public Use
  Company Number: None

PATIENT
  Age: 35 Year
  Sex: Male
  Weight: 50 kg

DRUGS (1)
  1. CHLORPHENIRAMINE MALEATE\DEXTROMETHORPHAN HYDROBROMIDE [Suspect]
     Active Substance: CHLORPHENIRAMINE MALEATE\DEXTROMETHORPHAN HYDROBROMIDE
     Indication: Dependence

REACTIONS (4)
  - Extra dose administered [None]
  - Drug dependence [None]
  - Substance use [None]
  - Disturbance in attention [None]

NARRATIVE: CASE EVENT DATE: 20220322
